FAERS Safety Report 5837540-4 (Version None)
Quarter: 2008Q3

REPORT INFORMATION
  Report Type: 
  Country: None (occurrence: None)
  Receive Date: 20080807
  Receipt Date: 20080728
  Transmission Date: 20090109
  Serious: Yes (Hospitalization)
  Sender: FDA-Public Use
  Company Number: US-ELI_LILLY_AND_COMPANY-US200807005527

PATIENT
  Sex: Male

DRUGS (14)
  1. CYMBALTA [Suspect]
     Indication: DEPRESSION
     Dosage: 60 MG, DAILY (1/D)
  2. QUETIAPINE FUMARATE [Concomitant]
     Dosage: 450 MG, UNK
  3. NALTREXONE HYDROCHLORIDE [Concomitant]
     Dosage: 50 MG, UNK
  4. CLONAZEPAM [Concomitant]
     Dosage: 1 MG, UNK
  5. ATENOLOL [Concomitant]
     Dosage: 50 MG, UNK
  6. PREVACID [Concomitant]
     Dosage: 30 MG, UNK
  7. ISOSORBIDE MONONITRATE [Concomitant]
     Dosage: 30 MG, UNK
  8. LIPITOR [Concomitant]
     Dosage: 10 MG, UNK
  9. VISTARIL [Concomitant]
     Indication: PRURITUS
     Dosage: 25 MG, EVERY 8 HRS
  10. ASPIRIN [Concomitant]
     Dosage: 91 MG, UNK
  11. LAMICTAL [Concomitant]
     Dosage: 100 MG, UNK
  12. COMBIVENT [Concomitant]
     Dosage: 1 D/F, 2/D
  13. ADVAIR DISKUS 100/50 [Concomitant]
     Dosage: 1 D/F, 2/D
  14. BENADRYL [Concomitant]
     Dosage: 25 MG, EACH EVENING

REACTIONS (2)
  - DEPRESSION [None]
  - DRUG SCREEN POSITIVE [None]
